FAERS Safety Report 8869943 (Version 1)
Quarter: 2012Q4

REPORT INFORMATION
  Report Type: 
  Country: US (occurrence: US)
  Receive Date: 20121028
  Receipt Date: 20121028
  Transmission Date: 20130627
  Serious: No
  Sender: FDA-Public Use
  Company Number: US-009507513-1210USA012152

PATIENT
  Age: 41 Year
  Sex: Male

DRUGS (10)
  1. ISENTRESS [Suspect]
     Indication: HIV INFECTION
     Dosage: 1 DF, bid
     Route: 048
     Dates: start: 201104
  2. PLAVIX [Concomitant]
  3. TOPAL [Concomitant]
  4. BENICAR [Concomitant]
  5. LOVAZA [Concomitant]
  6. LOVASTATIN [Concomitant]
  7. NORVASC [Concomitant]
  8. ATORVASTATIN [Concomitant]
  9. TRUVADA [Concomitant]
  10. KALETRA [Concomitant]

REACTIONS (1)
  - Thrombocytopenia [Not Recovered/Not Resolved]
